FAERS Safety Report 7732697-2 (Version None)
Quarter: 2011Q3

REPORT INFORMATION
  Report Type: 
  Country: None (occurrence: None)
  Receive Date: 20110907
  Receipt Date: 20110829
  Transmission Date: 20111222
  Serious: Yes (Hospitalization)
  Sender: FDA-Public Use
  Company Number: US-BIOGENIDEC-2011BI027520

PATIENT
  Age: 53 Year
  Sex: Female

DRUGS (14)
  1. HYDRALAZINE HCL [Concomitant]
     Route: 048
  2. PIPERACILLIN AND TAZOBACTAM [Concomitant]
     Route: 042
  3. BACLOFEN [Concomitant]
     Route: 048
  4. SIMVASTATIN [Concomitant]
     Route: 048
  5. ASCORBIC ACID [Concomitant]
     Route: 048
  6. AVONEX [Suspect]
     Indication: SECONDARY PROGRESSIVE MULTIPLE SCLEROSIS
     Route: 030
     Dates: start: 20000801, end: 20030701
  7. AVONEX [Suspect]
     Route: 030
  8. FLUOXETINE [Concomitant]
     Route: 048
  9. XENADERM [Concomitant]
     Route: 061
  10. AMANTIDINE [Concomitant]
     Route: 048
  11. MYLANTA/BENADRYL WITH LIDOCAINE [Concomitant]
  12. AVONEX [Suspect]
     Route: 030
     Dates: start: 20080801
  13. METOPROLOL [Concomitant]
     Route: 048
  14. MYCOPHENOLATE MOFETIL [Concomitant]
     Route: 048

REACTIONS (5)
  - URINARY TRACT INFECTION PSEUDOMONAL [None]
  - RENAL FAILURE ACUTE [None]
  - NEPHROLITHIASIS [None]
  - BACTERIAL PYELONEPHRITIS [None]
  - MULTIPLE SCLEROSIS RELAPSE [None]
